FAERS Safety Report 5220038-4 (Version None)
Quarter: 2007Q1

REPORT INFORMATION
  Report Type: 
  Country: None (occurrence: None)
  Receive Date: 20070124
  Receipt Date: 20070124
  Transmission Date: 20070707
  Serious: Yes (Other)
  Sender: FDA-Public Use
  Company Number: None

PATIENT
  Age: 68 Year
  Sex: Male
  Weight: 90.3 kg

DRUGS (8)
  1. HYDROCHLOROTHIAZIDE [Suspect]
  2. IPRATROPIUM BROMIDE [Concomitant]
  3. ATENOLOL [Concomitant]
  4. FLUVASTATIN NA [Concomitant]
  5. FOSINOPRIL NA [Concomitant]
  6. ATENOLOL [Concomitant]
  7. MOMETASONE FUROATE [Concomitant]
  8. LEVALBUTEROL TART [Concomitant]

REACTIONS (1)
  - HEADACHE [None]
